FAERS Safety Report 15189439 (Version 1)
Quarter: 2018Q3

REPORT INFORMATION
  Report Type: Other
  Country: CA (occurrence: CA)
  Receive Date: 20180724
  Receipt Date: 20180724
  Transmission Date: 20181010
  Serious: Yes (Other)
  Sender: FDA-Public Use
  Company Number: CA-APOTEX-2018AP017347

PATIENT
  Age: 35 Year
  Sex: Male

DRUGS (5)
  1. RISPERIDONE. [Suspect]
     Active Substance: RISPERIDONE
     Indication: PRODUCT USED FOR UNKNOWN INDICATION
     Route: 048
  2. RISPERDAL [Suspect]
     Active Substance: RISPERIDONE
     Indication: SCHIZOPHRENIA
     Route: 048
  3. RISPERDAL CONSTA [Suspect]
     Active Substance: RISPERIDONE
     Indication: SCHIZOPHRENIA
     Route: 030
  4. INVEGA [Suspect]
     Active Substance: PALIPERIDONE
     Indication: SCHIZOPHRENIA
     Dosage: UNK
     Route: 048
  5. INVEGA [Suspect]
     Active Substance: PALIPERIDONE
     Dosage: UNK
     Route: 048

REACTIONS (5)
  - Type 2 diabetes mellitus [Recovering/Resolving]
  - Dystonia [Recovering/Resolving]
  - Obesity [Recovering/Resolving]
  - Gynaecomastia [Recovering/Resolving]
  - Hyperprolactinaemia [Recovering/Resolving]
